FAERS Safety Report 25208963 (Version 2)
Quarter: 2025Q2

REPORT INFORMATION
  Report Type: Report from Study
  Country: EG (occurrence: EG)
  Receive Date: 20250417
  Receipt Date: 20250418
  Transmission Date: 20250717
  Serious: Yes (Death, Other)
  Sender: SANOFI AVENTIS
  Company Number: EG-SA-2025SA110338

PATIENT

DRUGS (1)
  1. IMIGLUCERASE [Suspect]
     Active Substance: IMIGLUCERASE
     Indication: Gaucher^s disease
     Dosage: 60 IU/KG, QOW
     Route: 065

REACTIONS (4)
  - Status epilepticus [Fatal]
  - Condition aggravated [Fatal]
  - Gaucher^s disease [Fatal]
  - Condition aggravated [Fatal]
